FAERS Safety Report 5822702-2 (Version None)
Quarter: 2008Q3

REPORT INFORMATION
  Report Type: 
  Country: None (occurrence: None)
  Receive Date: 20080725
  Receipt Date: 20080718
  Transmission Date: 20090109
  Serious: Yes (Death)
  Sender: FDA-Public Use
  Company Number: US-BAYER-200811880BCC

PATIENT
  Sex: Female

DRUGS (1)
  1. ASPIRIN [Suspect]
     Indication: ANALGESIA
     Dosage: UNIT DOSE: 1 DF
     Route: 048

REACTIONS (1)
  - GASTRIC ULCER [None]
